FAERS Safety Report 6256406-1 (Version None)
Quarter: 2009Q2

REPORT INFORMATION
  Report Type: 
  Country: None (occurrence: None)
  Receive Date: 20090630
  Receipt Date: 20090630
  Transmission Date: 20091009
  Serious: Yes (Other)
  Sender: FDA-Public Use
  Company Number: None

PATIENT
  Age: 39 Year
  Sex: Female
  Weight: 104.3273 kg

DRUGS (1)
  1. PRECARE PREMIER TABLETS THER-RX [Suspect]
     Indication: PREGNANCY
     Dosage: 1 TABLET ONCE A DAY PO
     Route: 048
     Dates: start: 20081201, end: 20090115

REACTIONS (2)
  - ABORTION SPONTANEOUS [None]
  - DRUG EXPOSURE DURING PREGNANCY [None]
